FAERS Safety Report 6268532-1 (Version None)
Quarter: 2009Q3

REPORT INFORMATION
  Report Type: 
  Country: None (occurrence: None)
  Receive Date: 20090713
  Receipt Date: 20090713
  Transmission Date: 20100115
  Serious: No
  Sender: FDA-Public Use
  Company Number: None

PATIENT
  Age: 21 Year
  Sex: Female
  Weight: 50.3493 kg

DRUGS (1)
  1. LEXAPRO [Suspect]
     Indication: ANXIETY
     Dosage: 10 MG ONCE BEFORE SLEEP PO (THIS WAS MY FIRST DOSE)
     Route: 048
     Dates: start: 20090711, end: 20090711

REACTIONS (16)
  - ABNORMAL SENSATION IN EYE [None]
  - AGITATION [None]
  - BLEPHAROSPASM [None]
  - DRY MOUTH [None]
  - EAR DISCOMFORT [None]
  - EPIGASTRIC DISCOMFORT [None]
  - HEADACHE [None]
  - HEART RATE INCREASED [None]
  - HOT FLUSH [None]
  - HYPERHIDROSIS [None]
  - NASAL DISCOMFORT [None]
  - NAUSEA [None]
  - PARAESTHESIA [None]
  - SEDATION [None]
  - TREMOR [None]
  - VOMITING [None]
